FAERS Safety Report 9507473 (Version 2)
Quarter: 2013Q4

REPORT INFORMATION
  Report Type: Report from Study
  Country: NL (occurrence: NL)
  Receive Date: 20130909
  Receipt Date: 20131010
  Transmission Date: 20140711
  Serious: Yes (Hospitalization)
  Sender: FDA-Public Use
  Company Number: NL-MPIJNJ-2013JNJ000152

PATIENT
  Sex: 0

DRUGS (10)
  1. VELCADE [Suspect]
     Indication: PLASMA CELL MYELOMA
     Dosage: 1.3 MG/M2, UNK
     Route: 058
     Dates: start: 20130705, end: 20130823
  2. CYCLOPHOSPHAMIDE [Suspect]
     Indication: PLASMA CELL MYELOMA
     Dosage: 500 MG/M2, UNK
     Route: 042
     Dates: start: 20130705, end: 20130823
  3. DEXAMETHASONE [Suspect]
     Indication: PLASMA CELL MYELOMA
     Dosage: 40 MG, UNK
     Route: 048
     Dates: start: 20130705, end: 20130824
  4. ASCAL                              /00002702/ [Concomitant]
     Dosage: 100 MG, UNK
     Route: 048
  5. VALACICLOVIR [Concomitant]
     Indication: PROPHYLAXIS
     Dosage: 500 MG, UNK
     Route: 048
  6. LIPITOR [Concomitant]
     Dosage: 5 MG, QD
     Route: 048
  7. FLUCONAZOLE [Concomitant]
     Indication: PROPHYLAXIS
     Dosage: 200 MG, UNK
     Route: 048
  8. INNOHEP [Concomitant]
     Dosage: 14000 UNK, UNK
     Route: 048
  9. OMEPRAZON [Concomitant]
     Dosage: 10 MG, UNK
     Route: 048
  10. PARACETAMOL [Concomitant]
     Indication: PAIN
     Dosage: 1 G, QID
     Route: 048

REACTIONS (2)
  - Hyperglycaemia [Recovered/Resolved with Sequelae]
  - Diverticulitis [Not Recovered/Not Resolved]
